FAERS Safety Report 4522852-7 (Version None)
Quarter: 2004Q4

REPORT INFORMATION
  Report Type: 
  Country: None (occurrence: None)
  Receive Date: 20041209
  Receipt Date: 20041206
  Transmission Date: 20050328
  Serious: Yes (Life-Threatening, Hospitalization, Disabling)
  Sender: FDA-Public Use
  Company Number: US-MERCK-0412USA00683

PATIENT
  Age: 39 Year
  Sex: Female

DRUGS (3)
  1. VIOXX [Suspect]
     Indication: PAIN
     Route: 048
     Dates: start: 19970101, end: 20040901
  2. VIOXX [Suspect]
     Indication: BONE DISORDER
     Route: 048
     Dates: start: 19970101, end: 20040901
  3. VICODIN [Concomitant]
     Route: 065

REACTIONS (4)
  - HAEMORRHAGE [None]
  - HEART INJURY [None]
  - MYOCARDIAL INFARCTION [None]
  - THROMBOSIS [None]
